FAERS Safety Report 6877736-6 (Version None)
Quarter: 2010Q3

REPORT INFORMATION
  Report Type: 
  Country: None (occurrence: None)
  Receive Date: 20100727
  Receipt Date: 20100610
  Transmission Date: 20110219
  Serious: No
  Sender: FDA-Public Use
  Company Number: US-ABBOTT-10P-163-0651561-00

PATIENT
  Sex: Female

DRUGS (5)
  1. SYNTHROID [Suspect]
     Indication: HYPOTHYROIDISM
     Dates: start: 20000101
  2. TOBRADEX [Suspect]
     Indication: EYE INFECTION
     Route: 047
     Dates: start: 20060101, end: 20060101
  3. ULTRAVATE [Suspect]
     Indication: VAGINAL INFECTION
     Route: 065
     Dates: start: 20060101, end: 20060101
  4. DIFLUCAN [Suspect]
     Indication: VAGINAL INFECTION
     Route: 065
     Dates: start: 20060101, end: 20060101
  5. CIPROFLOXACIN [Suspect]
     Indication: EAR INFECTION
     Route: 065
     Dates: start: 20060101, end: 20060101

REACTIONS (11)
  - CHEST PAIN [None]
  - DISORIENTATION [None]
  - DIZZINESS [None]
  - EAR INFECTION [None]
  - EYE INFECTION [None]
  - PRODUCT COATING ISSUE [None]
  - PRURITUS [None]
  - RASH [None]
  - SKIN HAEMORRHAGE [None]
  - URTICARIA [None]
  - VAGINAL INFECTION [None]
